FAERS Safety Report 16088905 (Version 2)
Quarter: 2019Q1

REPORT INFORMATION
  Report Type: Spontaneous
  Country: US (occurrence: US)
  Receive Date: 20190319
  Receipt Date: 20190328
  Transmission Date: 20190418
  Serious: Yes (Death, Hospitalization, Other)
  Sender: FDA-Public Use
  Company Number: US-VALIDUS PHARMACEUTICALS LLC-US-2019VAL000161

PATIENT

DRUGS (6)
  1. DEMEROL [Suspect]
     Active Substance: MEPERIDINE HYDROCHLORIDE
     Dosage: UNK
     Route: 042
     Dates: start: 1976
  2. DEMEROL [Suspect]
     Active Substance: MEPERIDINE HYDROCHLORIDE
     Indication: PRODUCT USED FOR UNKNOWN INDICATION
     Dosage: UNK; INJECTION
     Route: 030
     Dates: start: 1976
  3. DIHYDROMORPHINONE [Suspect]
     Active Substance: HYDROMORPHONE
     Indication: DRUG ABUSE
     Dosage: UNK
     Route: 065
  4. LEVODOPA [Suspect]
     Active Substance: LEVODOPA
     Indication: DRUG ABUSE
     Dosage: UNK
     Route: 065
  5. CODEINE SULFATE. [Suspect]
     Active Substance: CODEINE SULFATE
     Indication: DRUG ABUSE
     Dosage: UNK
     Route: 065
  6. COCAINE [Suspect]
     Active Substance: COCAINE
     Indication: DRUG ABUSE
     Dosage: UNK

REACTIONS (13)
  - Muscle rigidity [Recovered/Resolved]
  - Asthenia [Recovered/Resolved]
  - Parkinsonism [Recovered/Resolved]
  - Tremor [Recovered/Resolved]
  - Altered state of consciousness [Recovered/Resolved]
  - Mental impairment [Recovered/Resolved]
  - Drug abuse [Recovered/Resolved]
  - Locked-in syndrome [Recovered/Resolved]
  - Bradykinesia [Recovered/Resolved]
  - Reduced facial expression [Recovered/Resolved]
  - Intentional product misuse [Fatal]
  - Blepharospasm [Recovered/Resolved]
  - Thinking abnormal [Recovered/Resolved]

NARRATIVE: CASE EVENT DATE: 197611
